FAERS Safety Report 24602867 (Version 4)
Quarter: 2025Q2

REPORT INFORMATION
  Report Type: Spontaneous
  Country: US (occurrence: US)
  Receive Date: 20241111
  Receipt Date: 20250429
  Transmission Date: 20250716
  Serious: No
  Sender: TRAVERE THERAPEUTICS
  Company Number: US-TRAVERE-2024TVT01131

PATIENT
  Age: 43 Year
  Sex: Female

DRUGS (1)
  1. FILSPARI [Suspect]
     Active Substance: SPARSENTAN
     Indication: Product used for unknown indication
     Route: 048
     Dates: start: 20241025

REACTIONS (4)
  - Fatigue [None]
  - Nasopharyngitis [Unknown]
  - Illness [Unknown]
  - Pharyngitis streptococcal [Unknown]
